FAERS Safety Report 11117534 (Version 2)
Quarter: 2015Q2

REPORT INFORMATION
  Report Type: Spontaneous
  Country: US (occurrence: US)
  Receive Date: 20150517
  Receipt Date: 20150625
  Transmission Date: 20150821
  Serious: No
  Sender: FDA-Public Use
  Company Number: US-009507513-1504USA019760

PATIENT
  Sex: Female

DRUGS (1)
  1. BELSOMRA [Suspect]
     Active Substance: SUVOREXANT
     Dosage: QPM, HALF OF A 15 MG TABLET FOR TWO CONSECUTIVE NIGHTS
     Route: 048

REACTIONS (2)
  - Nausea [Unknown]
  - Wrong technique in drug usage process [Unknown]
